FAERS Safety Report 8218851-4 (Version None)
Quarter: 2012Q1

REPORT INFORMATION
  Report Type: 
  Country: None (occurrence: None)
  Receive Date: 20120319
  Receipt Date: 20120314
  Transmission Date: 20120608
  Serious: Yes (Life-Threatening, Hospitalization)
  Sender: FDA-Public Use
  Company Number: PHEH2012US001674

PATIENT
  Sex: Male
  Weight: 105.67 kg

DRUGS (4)
  1. VALTURNA [Suspect]
     Indication: HYPERTENSION
     Dosage: 1 DF, (150 MG ALIS AND 160 MG VALS)
  2. LEXAPRO [Concomitant]
  3. MOBIC [Suspect]
     Indication: MUSCULOSKELETAL PAIN
     Dosage: UNK UKN, UNK
     Dates: start: 20101101, end: 20110401
  4. VALTURNA [Suspect]
     Dosage: 1 DF (300/320), QD
     Dates: start: 20100701, end: 20110401

REACTIONS (6)
  - URETERAL DIVERTICULUM [None]
  - RENAL FAILURE ACUTE [None]
  - HYPERKALAEMIA [None]
  - ASTHENIA [None]
  - FEELING ABNORMAL [None]
  - DYSPNOEA [None]
